FAERS Safety Report 9357475 (Version 1)
Quarter: 2013Q2

REPORT INFORMATION
  Report Type: Spontaneous
  Country: US (occurrence: US)
  Receive Date: 20130620
  Receipt Date: 20130620
  Transmission Date: 20140414
  Serious: Yes (Other)
  Sender: FDA-Public Use
  Company Number: PHEH2013US012961

PATIENT
  Sex: Female

DRUGS (4)
  1. DIOVAN [Suspect]
     Dosage: 1 DF, (320 MG) PER DAY
  2. METFORMIN [Suspect]
     Indication: DIABETES MELLITUS
  3. DILTIAZEM [Suspect]
     Indication: BLOOD PRESSURE
  4. CITALOPRAM [Suspect]
     Indication: DEPRESSION

REACTIONS (4)
  - Diabetes mellitus [Unknown]
  - Thyroid disorder [Unknown]
  - Depression [Unknown]
  - Hypertension [Unknown]
